FAERS Safety Report 5281284-7 (Version None)
Quarter: 2007Q1

REPORT INFORMATION
  Report Type: 
  Country: None (occurrence: None)
  Receive Date: 20061221
  Receipt Date: 20060915
  Transmission Date: 20070707
  Serious: No
  Sender: FDA-Public Use
  Company Number: SP00980

PATIENT
  Age: 58 Year
  Sex: Male
  Weight: 99.7913 kg

DRUGS (7)
  1. XIFAXAN [Suspect]
     Indication: AMMONIA INCREASED
     Dosage: 200MG/QD, ORAL
     Route: 048
     Dates: start: 20060906, end: 20060914
  2. XIFAXAN [Suspect]
     Indication: HEPATITIS C
     Dosage: 200MG/QD, ORAL
     Route: 048
     Dates: start: 20060906, end: 20060914
  3. FUROSEMIDE [Concomitant]
  4. INSPRA [Concomitant]
  5. KLOR-CON [Concomitant]
  6. EFFEXOR [Concomitant]
  7. DOXAZOSIN MESYLATE [Concomitant]

REACTIONS (2)
  - ABDOMINAL PAIN UPPER [None]
  - DIARRHOEA [None]
